FAERS Safety Report 6992197-4 (Version None)
Quarter: 2010Q3

REPORT INFORMATION
  Report Type: 
  Country: None (occurrence: None)
  Receive Date: 20100917
  Receipt Date: 20100816
  Transmission Date: 20110219
  Serious: No
  Sender: FDA-Public Use
  Company Number: US-BAYER-201019996BCC

PATIENT
  Age: 81 Year
  Sex: Female
  Weight: 59 kg

DRUGS (4)
  1. ALEVE (CAPLET) [Suspect]
     Indication: PAIN
     Dosage: TOTAL DAILY DOSE: 440 MG  UNIT DOSE: 220 MG
     Route: 048
     Dates: start: 20100816
  2. VICODIN [Concomitant]
  3. ASPIRIN [Concomitant]
  4. NATURES CHOICE MULTIVITAMINS [Concomitant]

REACTIONS (2)
  - PALMAR ERYTHEMA [None]
  - PRURITUS [None]
